FAERS Safety Report 5990527-3 (Version None)
Quarter: 2008Q4

REPORT INFORMATION
  Report Type: 
  Country: None (occurrence: None)
  Receive Date: 20081211
  Receipt Date: 20081205
  Transmission Date: 20090506
  Serious: Yes (Death, Hospitalization)
  Sender: FDA-Public Use
  Company Number: MX-BAYER-200811343LA

PATIENT
  Age: 41 Year
  Sex: Male
  Weight: 113 kg

DRUGS (13)
  1. SORAFENIB [Suspect]
     Indication: HEPATIC NEOPLASM MALIGNANT
     Route: 048
     Dates: start: 20070719, end: 20080217
  2. SORAFENIB [Suspect]
     Route: 048
     Dates: start: 20080218, end: 20080410
  3. EPOGEN [Concomitant]
     Indication: ANAEMIA
     Route: 058
     Dates: start: 20080131, end: 20080212
  4. OMEPRAZOLE [Concomitant]
     Indication: OESOPHAGITIS
     Route: 048
     Dates: start: 20070402, end: 20080211
  5. URSODESOXYCHOLIC ACID [Concomitant]
     Indication: CHOLESTASIS
     Route: 048
     Dates: start: 20080131
  6. LIDOCAINE AND HYDROCORTISONE [Concomitant]
     Indication: HAEMORRHOIDS
     Route: 061
     Dates: start: 20080131
  7. VITAMIN SUPPLEMENTATION [Concomitant]
     Indication: MUSCULAR WEAKNESS
     Route: 048
     Dates: start: 20070119
  8. RANITIDINE [Concomitant]
     Indication: OESOPHAGITIS
     Route: 042
     Dates: start: 20080212
  9. HEPA MERZ (L-ORNITHINE L-ASPARTATE) [Concomitant]
     Indication: DRUG USE FOR UNKNOWN INDICATION
     Route: 065
  10. BUPRENORPHINE HCL [Concomitant]
     Indication: DRUG USE FOR UNKNOWN INDICATION
     Route: 058
  11. ONDANSETRON [Concomitant]
     Indication: DRUG USE FOR UNKNOWN INDICATION
     Route: 065
  12. HALOPERIDOL [Concomitant]
     Indication: DRUG USE FOR UNKNOWN INDICATION
     Route: 065
  13. NYSTATIN [Concomitant]
     Indication: DRUG USE FOR UNKNOWN INDICATION
     Route: 065

REACTIONS (14)
  - ABDOMINAL PAIN [None]
  - ASCITES [None]
  - DIARRHOEA [None]
  - ENCEPHALOPATHY [None]
  - HEPATIC NEOPLASM MALIGNANT [None]
  - HEPATORENAL SYNDROME [None]
  - HYPOCALCAEMIA [None]
  - HYPOKALAEMIA [None]
  - HYPOMAGNESAEMIA [None]
  - NAUSEA [None]
  - OEDEMA PERIPHERAL [None]
  - OESOPHAGEAL CANDIDIASIS [None]
  - VOMITING [None]
  - WAIST CIRCUMFERENCE INCREASED [None]
